FAERS Safety Report 15861307 (Version 3)
Quarter: 2022Q1

REPORT INFORMATION
  Report Type: Spontaneous
  Country: FR (occurrence: FR)
  Receive Date: 20190124
  Receipt Date: 20220118
  Transmission Date: 20220424
  Serious: Yes (Other)
  Sender: FDA-Public Use
  Company Number: FR-CELLTRION INC.-2019FR017946

PATIENT

DRUGS (13)
  1. RITUXIMAB [Suspect]
     Active Substance: RITUXIMAB
     Indication: Nephrotic syndrome
     Dosage: UNK
     Route: 065
  2. TENOFOVIR [Suspect]
     Active Substance: TENOFOVIR
     Indication: HIV infection
     Dosage: ADDITIONAL INFO: PRIOR MCNS DIAGNOSIS, AS A PART OF HIGHLY ACTIVE ANTIRETROVIRAL THERAPY (HAART) REG
     Route: 065
  3. TENOFOVIR DISOPROXIL [Suspect]
     Active Substance: TENOFOVIR DISOPROXIL
     Indication: HIV infection
     Dosage: PRIOR MCNS DIAGNOSIS. AS A PART OF HIGHLY ACTIVE ANTIRETROVIRAL THERAPY (HAART) REGIMEN.
     Route: 065
  4. TENOFOVIR DISOPROXIL [Suspect]
     Active Substance: TENOFOVIR DISOPROXIL
     Dosage: AS A PART OF HIGHLY ACTIVE ANTIRETROVIRAL THERAPY (HAART) REGIMEN
     Route: 065
  5. ETRAVIRINE [Concomitant]
     Active Substance: ETRAVIRINE
     Indication: HIV infection
     Dosage: THERAPY CONTINUED. AS A PART OF HIGHLY ACTIVE ANTIRETROVIRAL THERAPY (HAART) REGIMEN.
     Route: 065
  6. ETRAVIRINE [Concomitant]
     Active Substance: ETRAVIRINE
     Dosage: UNK
     Route: 065
  7. ETRAVIRINE [Concomitant]
     Active Substance: ETRAVIRINE
     Dosage: AS A PART OF HIGHLY ACTIVE ANTIRETROVIRAL THERAPY (HAART) REGIMEN
     Route: 065
  8. ABACAVIR [Concomitant]
     Active Substance: ABACAVIR
     Indication: HIV infection
     Dosage: POST MCNS DIAGNOSIS
     Route: 065
  9. ABACAVIR [Concomitant]
     Active Substance: ABACAVIR
     Dosage: UNK
     Route: 065
  10. EMTRICITABINE [Concomitant]
     Active Substance: EMTRICITABINE
     Indication: HIV infection
     Dosage: PRIOR MCNS DIAGNOSIS. AS A PART OF HIGHLY ACTIVE ANTIRETROVIRAL THERAPY (HAART) REGIMEN.
     Route: 065
  11. EMTRICITABINE [Concomitant]
     Active Substance: EMTRICITABINE
     Dosage: AS A PART OF HIGHLY ACTIVE ANTIRETROVIRAL THERAPY (HAART) REGIMEN
     Route: 065
  12. LAMIVUDINE [Concomitant]
     Active Substance: LAMIVUDINE
     Indication: HIV infection
     Dosage: ADDITIONAL INFO: POST MCNS DIAGNOSIS
     Route: 065
  13. LAMIVUDINE [Concomitant]
     Active Substance: LAMIVUDINE
     Dosage: UNK
     Route: 065

REACTIONS (3)
  - Acute kidney injury [Unknown]
  - Pneumonia [Unknown]
  - Off label use [Unknown]
